FAERS Safety Report 7180295-4 (Version None)
Quarter: 2010Q4

REPORT INFORMATION
  Report Type: 
  Country: None (occurrence: None)
  Receive Date: 20101221
  Receipt Date: 20101208
  Transmission Date: 20110411
  Serious: Yes (Death, Hospitalization, Disabling, Other)
  Sender: FDA-Public Use
  Company Number: US-CELGENEUS-163-21880-10060598

PATIENT
  Sex: Male
  Weight: 49.94 kg

DRUGS (39)
  1. REVLIMID [Suspect]
     Indication: MULTIPLE MYELOMA
     Route: 048
     Dates: start: 20100122
  2. REVLIMID [Suspect]
     Route: 048
     Dates: start: 20100301, end: 20100601
  3. THALOMID [Suspect]
     Indication: MULTIPLE MYELOMA
     Route: 048
     Dates: start: 20100607
  4. DEXAMETHASONE [Suspect]
     Route: 065
  5. CISPLATIN [Suspect]
     Route: 065
  6. ADRIAMYCIN PFS [Suspect]
     Route: 065
  7. CYCLOPHOSPHAMIDE [Suspect]
     Route: 065
  8. ETOPOSIDE [Suspect]
     Route: 065
  9. OS-CAL [Concomitant]
     Route: 048
     Dates: start: 20100624
  10. OMEPRAZOLE [Concomitant]
     Route: 048
  11. FENTANYL-100 [Concomitant]
     Indication: PAIN
     Route: 062
  12. FENTANYL-100 [Concomitant]
     Indication: DYSPEPSIA
     Route: 062
  13. NICOTINE [Concomitant]
     Dosage: 1
     Route: 062
  14. MORPHINE [Concomitant]
     Route: 048
  15. MORPHINE [Concomitant]
     Route: 048
     Dates: start: 20100709
  16. MORPHINE [Concomitant]
     Route: 048
     Dates: start: 20100628
  17. MORPHINE [Concomitant]
     Route: 048
     Dates: start: 20100628
  18. MORPHINE [Concomitant]
     Route: 048
     Dates: start: 20100427
  19. MORPHINE [Concomitant]
     Route: 048
     Dates: start: 20100427
  20. NORVASC [Concomitant]
     Route: 048
     Dates: start: 20100709
  21. NORVASC [Concomitant]
     Route: 048
     Dates: start: 20100623
  22. SPIRONOLACTONE [Concomitant]
     Route: 048
     Dates: start: 20100625
  23. POTASSIUM CHLORIDE [Concomitant]
     Route: 048
     Dates: start: 20100625
  24. LASIX [Concomitant]
     Route: 048
     Dates: start: 20100624
  25. INDERAL LA [Concomitant]
     Route: 048
     Dates: start: 20100623
  26. INDERAL LA [Concomitant]
     Route: 048
  27. MIRALAX [Concomitant]
     Route: 048
     Dates: start: 20100623
  28. VITAMIN D3 [Concomitant]
     Dosage: 1000 UNITS
     Route: 048
     Dates: start: 20100623
  29. COLACE [Concomitant]
     Route: 048
     Dates: start: 20100623
  30. OYSTER SHELL CALCIUM [Concomitant]
     Route: 048
  31. OYSTER SHELL CALCIUM [Concomitant]
     Route: 048
     Dates: start: 20100623
  32. LORAZEPAM [Concomitant]
     Route: 051
  33. ENOXAPARIN SODIUM [Concomitant]
     Route: 058
  34. VELCADE [Concomitant]
     Route: 065
  35. CIPRO [Concomitant]
     Route: 048
     Dates: start: 20100623
  36. OXYCODONE [Concomitant]
     Route: 048
     Dates: start: 20100624
  37. OXYCODONE [Concomitant]
     Route: 048
     Dates: start: 20100628
  38. ALLOPURINOL [Concomitant]
     Route: 048
     Dates: start: 20100702
  39. NORMAL SALINE [Concomitant]
     Route: 051

REACTIONS (8)
  - CACHEXIA [None]
  - DYSPEPSIA [None]
  - GRAND MAL CONVULSION [None]
  - HYPOTENSION [None]
  - MULTIPLE MYELOMA [None]
  - RENAL FAILURE ACUTE [None]
  - THROMBOCYTOPENIA [None]
  - TUMOUR LYSIS SYNDROME [None]
